FAERS Safety Report 20308930 (Version 1)
Quarter: 2022Q1

REPORT INFORMATION
  Report Type: Spontaneous
  Country: US (occurrence: None)
  Receive Date: 20220106
  Receipt Date: 20220106
  Transmission Date: 20220423
  Serious: No
  Sender: FDA-Public Use
  Company Number: None

PATIENT
  Age: 80 Year
  Sex: Male

DRUGS (2)
  1. VENETOCLAX [Suspect]
     Active Substance: VENETOCLAX
     Dosage: 400 MG DAILY  ORAL?
     Route: 048
     Dates: start: 20211110, end: 20211231
  2. RITUXIMAB [Suspect]
     Active Substance: RITUXIMAB
     Dosage: 818 MG IV
     Route: 042

REACTIONS (4)
  - Urinary tract infection [None]
  - Hydrocele [None]
  - Blood urine present [None]
  - Therapy interrupted [None]

NARRATIVE: CASE EVENT DATE: 20211231
